FAERS Safety Report 7500498-6 (Version None)
Quarter: 2011Q2

REPORT INFORMATION
  Report Type: 
  Country: None (occurrence: None)
  Receive Date: 20110524
  Receipt Date: 20110519
  Transmission Date: 20111010
  Serious: No
  Sender: FDA-Public Use
  Company Number: US-PFIZER INC-2011109665

PATIENT
  Sex: Female
  Weight: 58.957 kg

DRUGS (6)
  1. ZOLOFT [Suspect]
     Dosage: 25 MG DAILY
     Route: 048
  2. CLONIDINE [Concomitant]
     Indication: ANXIETY
     Dosage: 0.5 MG, DAILY
     Route: 048
  3. VESICARE [Concomitant]
     Indication: ATTENTION DEFICIT/HYPERACTIVITY DISORDER
     Dosage: 60 MG DAILY
     Route: 048
  4. ZOLOFT [Suspect]
     Indication: ANXIETY
     Dosage: 12.5 MG DAILY
     Route: 048
     Dates: start: 20110501
  5. XANAX [Concomitant]
     Indication: ANXIETY
     Dosage: 0.25 MG, DAILY
     Route: 048
  6. STRATTERA [Concomitant]
     Indication: URINARY INCONTINENCE
     Dosage: 5 MG, DAILY
     Route: 048

REACTIONS (1)
  - LIBIDO INCREASED [None]
